FAERS Safety Report 16882787 (Version 4)
Quarter: 2019Q4

REPORT INFORMATION
  Report Type: Spontaneous
  Country: DE (occurrence: DE)
  Receive Date: 20191003
  Receipt Date: 20191206
  Transmission Date: 20200122
  Serious: Yes (Other)
  Sender: FDA-Public Use
  Company Number: DE-AUROBINDO-AUR-APL-2019-053421

PATIENT
  Age: 40 Year
  Sex: Female
  Weight: 127 kg

DRUGS (7)
  1. ZIPRASIDON PUREN CAPSULES, HARD 40MG [Suspect]
     Active Substance: ZIPRASIDONE
     Indication: DELUSION
     Dosage: 80 MILLIGRAM, ONCE A DAY
     Route: 048
     Dates: start: 20190810
  2. OLANZAPINE SUN [Suspect]
     Active Substance: OLANZAPINE
     Indication: DELUSION
     Dosage: 5 MILLIGRAM, ONCE A DAY
     Route: 048
     Dates: end: 201907
  3. OLANZAPINE SUN [Suspect]
     Active Substance: OLANZAPINE
     Indication: PSYCHOTIC DISORDER
     Dosage: 2.5 MILLIGRAM, ONCE A DAY
     Route: 048
     Dates: start: 2003
  4. ZIPRASIDON PUREN CAPSULES, HARD 40MG [Suspect]
     Active Substance: ZIPRASIDONE
     Indication: PSYCHOTIC DISORDER
     Dosage: 40 MILLIGRAM, ONCE A DAY
     Route: 048
     Dates: start: 20190727, end: 20190809
  5. ERGENYL CHRONO [Concomitant]
     Active Substance: VALPROIC ACID
     Indication: EPILEPSY
     Dosage: 1000 MILLIGRAM, DAILY
     Route: 048
     Dates: start: 2015
  6. OLANZAPINE SUN [Suspect]
     Active Substance: OLANZAPINE
     Dosage: 2.5 MILLIGRAM, ONCE A DAY
     Route: 048
     Dates: start: 20190810, end: 20190906
  7. LAMICTAL [Concomitant]
     Active Substance: LAMOTRIGINE
     Indication: EPILEPSY
     Dosage: 275 MILLIGRAM, DAILY
     Route: 048
     Dates: start: 1991

REACTIONS (11)
  - Infection susceptibility increased [Recovered/Resolved]
  - Hunger [Recovered/Resolved]
  - Drug ineffective [Recovered/Resolved]
  - Psychotic disorder [Not Recovered/Not Resolved]
  - Weight increased [Recovered/Resolved]
  - Cough [Recovered/Resolved]
  - Rhinitis [Recovered/Resolved]
  - Enuresis [Not Recovered/Not Resolved]
  - Pyrexia [Unknown]
  - Fatigue [Not Recovered/Not Resolved]
  - Encopresis [Recovered/Resolved]

NARRATIVE: CASE EVENT DATE: 201908
